FAERS Safety Report 9667703 (Version 2)
Quarter: 2013Q4

REPORT INFORMATION
  Report Type: Report from Study
  Country: BR (occurrence: BR)
  Receive Date: 20131104
  Receipt Date: 20131104
  Transmission Date: 20140711
  Serious: Yes (Hospitalization, Other)
  Sender: FDA-Public Use
  Company Number: BR-BAYER-2013-121722

PATIENT
  Age: 29 Year
  Sex: Female
  Weight: 48 kg

DRUGS (3)
  1. YAZ [Suspect]
     Indication: MENSTRUATION IRREGULAR
     Dosage: 1 DF, QD
     Route: 048
     Dates: start: 2010, end: 201310
  2. YAZ [Suspect]
     Indication: OVARIAN DISORDER
  3. FLUOXETINE [Concomitant]
     Dosage: 1 DF, QD
     Route: 048
     Dates: start: 2008

REACTIONS (8)
  - Inappropriate schedule of drug administration [None]
  - Off label use [None]
  - Abdominal pain [Not Recovered/Not Resolved]
  - Nausea [Not Recovered/Not Resolved]
  - Vomiting [Recovered/Resolved]
  - Convulsion [Recovered/Resolved]
  - Lactose intolerance [Not Recovered/Not Resolved]
  - Colitis [Not Recovered/Not Resolved]
